FAERS Safety Report 4776385-3 (Version None)
Quarter: 2005Q3

REPORT INFORMATION
  Report Type: 
  Country: None (occurrence: None)
  Receive Date: 20050921
  Receipt Date: 20050909
  Transmission Date: 20060218
  Serious: Yes (Hospitalization)
  Sender: FDA-Public Use
  Company Number: 216554

PATIENT
  Age: 40 Year
  Sex: Male

DRUGS (3)
  1. AVASTIN [Suspect]
     Dosage: UNK, INTRAVENOUS
     Route: 042
     Dates: start: 20050718
  2. NEXIUM [Concomitant]
  3. LOPERAMIDE [Concomitant]

REACTIONS (2)
  - CARDIOMYOPATHY [None]
  - CHEST PAIN [None]
